FAERS Safety Report 8859511 (Version 1)
Quarter: 2012Q4

REPORT INFORMATION
  Report Type: 
  Country: ES (occurrence: ES)
  Receive Date: 20121024
  Receipt Date: 20121024
  Transmission Date: 20130627
  Serious: Yes (Hospitalization)
  Sender: FDA-Public Use
  Company Number: ES-BAYER-2012-111566

PATIENT
  Age: 70 Year
  Sex: Female

DRUGS (2)
  1. ULTRAVIST [Suspect]
     Indication: COMPUTERIZED TOMOGRAPHY
     Route: 042
     Dates: start: 20120824, end: 20120824
  2. ULTRAVIST [Suspect]
     Indication: NEOPLASM

REACTIONS (3)
  - Generalised oedema [Unknown]
  - Erythema [Unknown]
  - Respiratory distress [Unknown]
